FAERS Safety Report 5606045-8 (Version None)
Quarter: 2008Q1

REPORT INFORMATION
  Report Type: 
  Country: None (occurrence: None)
  Receive Date: 20080129
  Receipt Date: 20080116
  Transmission Date: 20080703
  Serious: Yes (Other)
  Sender: FDA-Public Use
  Company Number: GB-GENENTECH-251701

PATIENT

DRUGS (3)
  1. LUCENTIS [Suspect]
     Dosage: UNK, UNKNOWN
     Route: 065
  2. RANIBIZUMAB [Suspect]
  3. RANIBIZUMAB [Suspect]

REACTIONS (1)
  - CEREBROVASCULAR ACCIDENT [None]
